FAERS Safety Report 19631159 (Version 1)
Quarter: 2021Q3

REPORT INFORMATION
  Report Type: Spontaneous
  Country: AR (occurrence: AR)
  Receive Date: 20210728
  Receipt Date: 20210728
  Transmission Date: 20211014
  Serious: Yes (Other)
  Sender: FDA-Public Use
  Company Number: AR-PFIZER INC-2021081197

PATIENT
  Age: 61 Year
  Sex: Female

DRUGS (1)
  1. IBRANCE [Suspect]
     Active Substance: PALBOCICLIB
     Indication: BREAST CANCER METASTATIC
     Dosage: 125 MG, CYCLIC (DAILY 3X1 SCHEME)
     Dates: start: 20210113

REACTIONS (8)
  - Asthenia [Unknown]
  - Neck pain [Unknown]
  - Nervousness [Unknown]
  - Pain [Unknown]
  - Depressed mood [Unknown]
  - Seizure [Unknown]
  - Neoplasm progression [Unknown]
  - Malaise [Unknown]
